FAERS Safety Report 23070645 (Version 2)
Quarter: 2023Q4

REPORT INFORMATION
  Report Type: Spontaneous
  Country: JP (occurrence: JP)
  Receive Date: 20231016
  Receipt Date: 20231215
  Transmission Date: 20240110
  Serious: Yes (Death, Other)
  Sender: FDA-Public Use
  Company Number: JP-BAYER-2023A142849

PATIENT
  Sex: Male

DRUGS (1)
  1. XOFIGO [Suspect]
     Active Substance: RADIUM RA-223 DICHLORIDE
     Indication: Hormone-refractory prostate cancer
     Dosage: UNK
     Dates: start: 20230905, end: 20231010

REACTIONS (2)
  - Metastases to central nervous system [Fatal]
  - Cerebral haemorrhage [None]

NARRATIVE: CASE EVENT DATE: 20231010
